FAERS Safety Report 6317143-8 (Version None)
Quarter: 2009Q3

REPORT INFORMATION
  Report Type: 
  Country: None (occurrence: None)
  Receive Date: 20090819
  Receipt Date: 20090810
  Transmission Date: 20100115
  Serious: Yes (Hospitalization, Other)
  Sender: FDA-Public Use
  Company Number: GXBR2009US01574

PATIENT
  Age: 51 Year
  Sex: Male
  Weight: 106.6 kg

DRUGS (1)
  1. METHADONE HYDROCHLORIDE [Suspect]
     Indication: BACK PAIN
     Dosage: 5 MG, QID, ORAL
     Route: 048
     Dates: start: 20090101, end: 20090601

REACTIONS (7)
  - AMNESIA [None]
  - COMA [None]
  - DECREASED APPETITE [None]
  - DRUG EFFECT DECREASED [None]
  - MENTAL DISORDER [None]
  - RENAL FAILURE [None]
  - SPEECH DISORDER [None]
